FAERS Safety Report 5622541-1 (Version None)
Quarter: 2008Q1

REPORT INFORMATION
  Report Type: 
  Country: None (occurrence: None)
  Receive Date: 20080114
  Receipt Date: 20071029
  Transmission Date: 20080703
  Serious: Yes (Hospitalization)
  Sender: FDA-Public Use
  Company Number: A03200706217

PATIENT
  Age: 79 Year
  Sex: Female

DRUGS (4)
  1. PLAVIX [Suspect]
     Indication: ACUTE CORONARY SYNDROME
     Dosage: 75 MG QD - ORAL
     Route: 048
     Dates: start: 20070101
  2. ASPIRIN [Suspect]
     Indication: ANTICOAGULANT THERAPY
     Dosage: 81 MG QD - ORAL
     Route: 048
     Dates: start: 20070716
  3. WARFARIN SODIUM [Suspect]
     Indication: CARDIOVASCULAR EVENT PROPHYLAXIS
     Dosage: 9 MG QD - ORAL
     Route: 048
     Dates: start: 20070310, end: 20070901
  4. WARFARIN SODIUM [Suspect]
     Indication: EMBOLISM
     Dosage: 9 MG QD - ORAL
     Route: 048
     Dates: start: 20070310, end: 20070901

REACTIONS (3)
  - EPISTAXIS [None]
  - GASTROINTESTINAL HAEMORRHAGE [None]
  - HAEMOGLOBIN DECREASED [None]
